FAERS Safety Report 13780981 (Version 1)
Quarter: 2017Q3

REPORT INFORMATION
  Report Type: Spontaneous
  Country: US (occurrence: US)
  Receive Date: 20170724
  Receipt Date: 20170724
  Transmission Date: 20171127
  Serious: Yes (Death, Other)
  Sender: FDA-Public Use
  Company Number: US-AMGEN-USASP2017109432

PATIENT
  Age: 67 Year
  Sex: Male
  Weight: 102.4 kg

DRUGS (16)
  1. NEUPOGEN [Suspect]
     Active Substance: FILGRASTIM
     Indication: WHITE BLOOD CELL COUNT DECREASED
     Dosage: 480MCG/018ML (AT BEDTIME)
     Route: 030
  2. VENCLEXTA [Suspect]
     Active Substance: VENETOCLAX
     Dosage: 200 MG, (2 IN 1 D)
     Route: 048
  3. VENCLEXTA [Suspect]
     Active Substance: VENETOCLAX
     Dosage: 600 MG, (6 IN 1 D)
     Route: 048
  4. DIGOXIN. [Concomitant]
     Active Substance: DIGOXIN
     Dosage: 125 MUG, UNK
     Route: 048
  5. VENCLEXTA [Suspect]
     Active Substance: VENETOCLAX
     Indication: MYELODYSPLASTIC SYNDROME
     Dosage: 100 MG, (1 IN 1 D)
     Route: 048
  6. VENCLEXTA [Suspect]
     Active Substance: VENETOCLAX
     Dosage: 200 MG, (2 IN 1 D)
     Route: 048
  7. AMOXICILLIN TRIHYDRATE [Concomitant]
     Active Substance: AMOXICILLIN
     Dosage: 875/125 MILLIGRAM
     Route: 048
  8. MIDODRINE [Concomitant]
     Active Substance: MIDODRINE
     Dosage: 10 MG, 2 IN 1 D
     Route: 048
  9. MOXIFLOXACIN. [Concomitant]
     Active Substance: MOXIFLOXACIN
     Dosage: 400 MG, UNK
     Route: 048
  10. CRESEMBA [Concomitant]
     Active Substance: ISAVUCONAZONIUM SULFATE
     Dosage: 186 MILLIGRAM/372 MILLIGRAM
     Route: 048
  11. METOPROLOL. [Concomitant]
     Active Substance: METOPROLOL
     Dosage: 12.5 MG, Q12H (25 MILLICURIES)
     Route: 048
  12. VENCLEXTA [Suspect]
     Active Substance: VENETOCLAX
     Dosage: 300 MG, (3 IN 1 D)
     Route: 048
  13. VENCLEXTA [Suspect]
     Active Substance: VENETOCLAX
     Dosage: 400 MG, (4 IN 1 D)
     Route: 048
  14. CLARITIN [Concomitant]
     Active Substance: LORATADINE
     Dosage: A WHILE BACK, ONLY TOOK ONCE
     Route: 048
  15. ACYCLOVIR. [Concomitant]
     Active Substance: ACYCLOVIR
     Dosage: 400 MG, 12 HOURS
     Route: 048
  16. VENCLEXTA [Suspect]
     Active Substance: VENETOCLAX
     Dosage: 500 MG, (5 IN 1 D)
     Route: 048

REACTIONS (25)
  - Muscular weakness [Unknown]
  - Malaise [Unknown]
  - Asthenia [Unknown]
  - Quality of life decreased [Not Recovered/Not Resolved]
  - Dysstasia [Unknown]
  - Vomiting [Recovered/Resolved]
  - Off label use [Unknown]
  - Visual impairment [Unknown]
  - Heart rate irregular [Not Recovered/Not Resolved]
  - Urine abnormality [Not Recovered/Not Resolved]
  - Insomnia [Recovered/Resolved]
  - Back pain [Unknown]
  - Dyspnoea [Not Recovered/Not Resolved]
  - Arthralgia [Unknown]
  - Feeling abnormal [Unknown]
  - Myalgia [Not Recovered/Not Resolved]
  - Death [Fatal]
  - Feeling abnormal [Not Recovered/Not Resolved]
  - Malaise [Recovered/Resolved]
  - Red blood cell count decreased [Unknown]
  - Platelet count decreased [Unknown]
  - White blood cell count decreased [Unknown]
  - Vision blurred [Unknown]
  - Weight fluctuation [Unknown]
  - Confusional state [Not Recovered/Not Resolved]

NARRATIVE: CASE EVENT DATE: 2017
